FAERS Safety Report 9410549 (Version 3)
Quarter: 2013Q3

REPORT INFORMATION
  Report Type: Report from Study
  Country: JP (occurrence: JP)
  Receive Date: 20130719
  Receipt Date: 20130814
  Transmission Date: 20140515
  Serious: Yes (Death, Hospitalization)
  Sender: FDA-Public Use
  Company Number: JP-ROCHE-1249916

PATIENT
  Age: 75 Year
  Sex: Male
  Weight: 72.9 kg

DRUGS (3)
  1. CAPECITABINE [Suspect]
     Indication: GASTRIC CANCER
     Dosage: 1-14D: Q3W
     Route: 048
     Dates: start: 20130206, end: 20130627
  2. OXALIPLATIN [Suspect]
     Indication: GASTRIC CANCER
     Route: 042
     Dates: start: 20130206, end: 20130620
  3. PROPETO [Concomitant]
     Indication: PALMAR-PLANTAR ERYTHRODYSAESTHESIA SYNDROME
     Dosage: PROPER QUANTITY
     Route: 061
     Dates: start: 20130208

REACTIONS (1)
  - Mesenteric artery thrombosis [Fatal]
